FAERS Safety Report 6082371-6 (Version None)
Quarter: 2009Q1

REPORT INFORMATION
  Report Type: 
  Country: None (occurrence: None)
  Receive Date: 20090130
  Receipt Date: 20080319
  Transmission Date: 20090719
  Serious: Yes (Life-Threatening)
  Sender: FDA-Public Use
  Company Number: 8030939

PATIENT
  Sex: Male

DRUGS (2)
  1. KEPPRA [Suspect]
  2. SSRI [Concomitant]

REACTIONS (1)
  - SUICIDE ATTEMPT [None]
